FAERS Safety Report 6078540-1 (Version None)
Quarter: 2009Q1

REPORT INFORMATION
  Report Type: 
  Country: None (occurrence: None)
  Receive Date: 20090212
  Receipt Date: 20090212
  Transmission Date: 20090719
  Serious: Yes (Life-Threatening, Hospitalization)
  Sender: FDA-Public Use
  Company Number: None

PATIENT
  Age: 10 Month
  Sex: Female
  Weight: 9.5255 kg

DRUGS (1)
  1. PROPRANOLOL HYDROCHLORIDE INTENSOL [Suspect]
     Indication: HAEMANGIOMA
     Dosage: 1.7 ML 3 TIMES DAILY PO
     Route: 048
     Dates: start: 20090103, end: 20090204

REACTIONS (9)
  - BODY TEMPERATURE DECREASED [None]
  - COLD SWEAT [None]
  - DRUG TOXICITY [None]
  - HEART RATE DECREASED [None]
  - HYPERHIDROSIS [None]
  - IRRITABILITY [None]
  - JAUNDICE [None]
  - LOSS OF CONSCIOUSNESS [None]
  - SKIN DISCOLOURATION [None]
